FAERS Safety Report 7032889-4 (Version None)
Quarter: 2010Q4

REPORT INFORMATION
  Report Type: 
  Country: None (occurrence: None)
  Receive Date: 20101007
  Receipt Date: 20100928
  Transmission Date: 20110411
  Serious: Yes (Hospitalization)
  Sender: FDA-Public Use
  Company Number: FI-JNJFOC-20100908428

PATIENT
  Sex: Female
  Weight: 89 kg

DRUGS (7)
  1. REMICADE [Suspect]
     Indication: RHEUMATOID ARTHRITIS
     Route: 042
  2. METHOTREXATE [Suspect]
     Indication: RHEUMATOID ARTHRITIS
  3. SALAZOPYRIN EN [Concomitant]
     Indication: RHEUMATOID ARTHRITIS
     Route: 048
  4. OXIKLORIN [Concomitant]
     Indication: RHEUMATOID ARTHRITIS
     Route: 048
  5. FOLIC ACID [Concomitant]
     Dosage: INDICATION: ^PROTECTIVE PRODUCT FOR METHOTREXATE^
     Route: 048
  6. THYROXIN [Concomitant]
     Indication: HYPOTHYROIDISM
  7. CALCICHEW D3 FORTE [Concomitant]
     Indication: OSTEOPOROSIS PROPHYLAXIS
     Dosage: DOSE: 1G/800 IU/DAY

REACTIONS (1)
  - BREAST CANCER [None]
